FAERS Safety Report 7226684-0 (Version None)
Quarter: 2011Q1

REPORT INFORMATION
  Report Type: 
  Country: None (occurrence: None)
  Receive Date: 20110114
  Receipt Date: 20110112
  Transmission Date: 20110831
  Serious: Yes (Hospitalization, Other)
  Sender: FDA-Public Use
  Company Number: FR-BRISTOL-MYERS SQUIBB COMPANY-15393549

PATIENT
  Age: 60 Year
  Sex: Female

DRUGS (9)
  1. SULFARLEM [Suspect]
     Indication: PSYCHOTIC DISORDER
     Route: 048
     Dates: start: 20050101, end: 20101104
  2. LEPTICUR [Suspect]
     Indication: BIPOLAR I DISORDER
     Route: 048
     Dates: start: 20100530, end: 20101104
  3. DEPAKOTE [Suspect]
     Indication: BIPOLAR I DISORDER
     Dosage: DOSE REDUCED TO 250MG BID,1 IN MORNING 1 IN EVENING.
     Route: 048
     Dates: start: 20050101
  4. PAROXETINE [Suspect]
     Route: 048
     Dates: start: 20050101, end: 20101104
  5. VALIUM [Suspect]
     Dates: end: 20101104
  6. NOCTAMIDE [Suspect]
     Indication: BIPOLAR I DISORDER
     Dosage: 1 TAB IN EVENING
     Route: 048
     Dates: start: 20050101
  7. ABILIFY [Suspect]
     Indication: BIPOLAR I DISORDER
     Route: 048
     Dates: start: 20100530, end: 20101030
  8. NOCTRAN [Suspect]
     Dosage: 1DF:1 UNIT NOS AT EVENING
     Route: 048
     Dates: end: 20101104
  9. THERALENE [Suspect]
     Indication: BIPOLAR I DISORDER
     Dosage: IN THE EVENING
     Route: 048
     Dates: start: 20050101

REACTIONS (3)
  - EXTRAPYRAMIDAL DISORDER [None]
  - NEPHRITIS ALLERGIC [None]
  - RENAL FAILURE ACUTE [None]
